FAERS Safety Report 18552748 (Version 6)
Quarter: 2021Q1

REPORT INFORMATION
  Report Type: Report from Study
  Country: US (occurrence: US)
  Receive Date: 20201127
  Receipt Date: 20210128
  Transmission Date: 20210419
  Serious: Yes (Hospitalization)
  Sender: FDA-Public Use
  Company Number: NVSC2020US308032

PATIENT
  Age: 74 Year
  Sex: Male

DRUGS (1)
  1. ENTRESTO [Suspect]
     Active Substance: SACUBITRIL\VALSARTAN
     Indication: PRODUCT USED FOR UNKNOWN INDICATION
     Dosage: 50 MG, QD
     Route: 048
     Dates: start: 202011

REACTIONS (6)
  - Pneumonia [Unknown]
  - Dizziness postural [Recovering/Resolving]
  - Inappropriate schedule of product administration [Unknown]
  - Memory impairment [Unknown]
  - Underdose [Unknown]
  - COVID-19 [Unknown]

NARRATIVE: CASE EVENT DATE: 202011
